FAERS Safety Report 24369903 (Version 3)
Quarter: 2024Q4

REPORT INFORMATION
  Report Type: Report from Study
  Country: CA (occurrence: CA)
  Receive Date: 20240927
  Receipt Date: 20241010
  Transmission Date: 20250115
  Serious: Yes (Hospitalization)
  Sender: ABBVIE
  Company Number: CA-ABBVIE-5938344

PATIENT
  Age: 38 Year
  Sex: Male

DRUGS (2)
  1. RINVOQ [Suspect]
     Active Substance: UPADACITINIB
     Indication: Crohn^s disease
     Dosage: LAST ADMIN DATE: 2024
     Route: 048
     Dates: start: 20240814
  2. RINVOQ [Suspect]
     Active Substance: UPADACITINIB
     Indication: Crohn^s disease
     Route: 048
     Dates: start: 2024, end: 20240909

REACTIONS (9)
  - Viral infection [Recovering/Resolving]
  - Mucosal inflammation [Unknown]
  - Lip ulceration [Unknown]
  - Odynophagia [Unknown]
  - Herpes simplex oesophagitis [Unknown]
  - Off label use [Recovering/Resolving]
  - Weight decreased [Unknown]
  - Hypophagia [Unknown]
  - Mouth ulceration [Unknown]

NARRATIVE: CASE EVENT DATE: 20240101
